FAERS Safety Report 15455079 (Version 2)
Quarter: 2019Q1

REPORT INFORMATION
  Report Type: Report from Study
  Country: US (occurrence: US)
  Receive Date: 20181002
  Receipt Date: 20190115
  Transmission Date: 20190417
  Serious: Yes (Hospitalization)
  Sender: FDA-Public Use
  Company Number: US-TESAROUBC-US-2018TSO04475

PATIENT
  Age: 78 Year
  Sex: Female
  Weight: 71.2 kg

DRUGS (2)
  1. ZEJULA [Suspect]
     Active Substance: NIRAPARIB
     Dosage: 300 MG, QD
     Route: 048
     Dates: start: 20180824, end: 20180825
  2. ZEJULA [Suspect]
     Active Substance: NIRAPARIB
     Indication: OVARIAN CANCER
     Dosage: 300 MG, QD
     Route: 048
     Dates: start: 20180811, end: 20180818

REACTIONS (4)
  - Vomiting [Unknown]
  - Nausea [Unknown]
  - Dehydration [Unknown]
  - Product dose omission [Unknown]

NARRATIVE: CASE EVENT DATE: 20180816
